FAERS Safety Report 17670454 (Version 1)
Quarter: 2020Q2

REPORT INFORMATION
  Report Type: Spontaneous
  Country: GB (occurrence: GB)
  Receive Date: 20200415
  Receipt Date: 20200415
  Transmission Date: 20200713
  Serious: Yes (Hospitalization)
  Sender: FDA-Public Use
  Company Number: GB-TEVA-2020-GB-1222297

PATIENT
  Sex: Male

DRUGS (7)
  1. BICALUTAMIDE. [Concomitant]
     Active Substance: BICALUTAMIDE
     Dosage: 150MG
     Route: 048
     Dates: end: 20200116
  2. LACTULOSE. [Concomitant]
     Active Substance: LACTULOSE
     Indication: HEPATIC ENCEPHALOPATHY
     Dates: start: 20200114
  3. AMLODIPINE [Concomitant]
     Active Substance: AMLODIPINE BESYLATE
     Dosage: 10 MILLIGRAM DAILY; MORNING
     Route: 048
  4. TAMOXIFEN [Suspect]
     Active Substance: TAMOXIFEN
     Indication: PROSTATE CANCER
     Dosage: 40MG
     Route: 048
     Dates: start: 2015, end: 20200120
  5. AZITHROMYCIN ANHYDROUS. [Concomitant]
     Active Substance: AZITHROMYCIN ANHYDROUS
     Indication: CELLULITIS
     Dosage: 20MG
     Dates: start: 20200111
  6. ATORVASTATIN [Concomitant]
     Active Substance: ATORVASTATIN
     Dosage: 20 MILLIGRAM DAILY; NIGHT
     Route: 048
     Dates: end: 20200116
  7. THIAMINE. [Concomitant]
     Active Substance: THIAMINE
     Dosage: 100MG
     Route: 048

REACTIONS (5)
  - Tremor [Unknown]
  - Cerebral venous thrombosis [Recovering/Resolving]
  - Confusional state [Recovering/Resolving]
  - Hypophagia [Unknown]
  - Balance disorder [Unknown]

NARRATIVE: CASE EVENT DATE: 202001
